FAERS Safety Report 12346001 (Version 3)
Quarter: 2016Q3

REPORT INFORMATION
  Report Type: Report from Study
  Country: CA (occurrence: CA)
  Receive Date: 20160509
  Receipt Date: 20160710
  Transmission Date: 20161109
  Serious: Yes (Hospitalization, Other)
  Sender: FDA-Public Use
  Company Number: PHHY2012CA062895

PATIENT
  Age: 48 Year
  Sex: Male

DRUGS (4)
  1. SANDOSTATIN LAR DEPOT [Suspect]
     Active Substance: OCTREOTIDE ACETATE
     Dosage: 30 MG, QMO (EVERY 4 WEEKS)
     Route: 030
  2. PREDNISONE. [Concomitant]
     Active Substance: PREDNISONE
     Indication: PRODUCT USED FOR UNKNOWN INDICATION
     Dosage: 50 MG, QD
     Route: 065
  3. PREDNISONE. [Concomitant]
     Active Substance: PREDNISONE
     Dosage: 40 MG, QD
     Route: 065
  4. SANDOSTATIN LAR DEPOT [Suspect]
     Active Substance: OCTREOTIDE ACETATE
     Indication: NEUROENDOCRINE CARCINOMA
     Dosage: 30 MG, QMO (ONCE A MONTH)
     Route: 030
     Dates: start: 20120615

REACTIONS (15)
  - Oedema peripheral [Unknown]
  - Body temperature increased [Unknown]
  - Malignant neoplasm progression [Unknown]
  - Neoplasm progression [Unknown]
  - Blood pressure increased [Unknown]
  - Alopecia [Unknown]
  - Rash [Not Recovered/Not Resolved]
  - Pneumonia [Unknown]
  - Pain in extremity [Recovering/Resolving]
  - Metastases to spine [Unknown]
  - Blood pressure systolic increased [Unknown]
  - Platelet count decreased [Unknown]
  - Blood pressure diastolic increased [Unknown]
  - Venous thrombosis limb [Unknown]
  - Joint swelling [Unknown]

NARRATIVE: CASE EVENT DATE: 201403
